FAERS Safety Report 14250657 (Version 1)
Quarter: 2017Q4

REPORT INFORMATION
  Report Type: Spontaneous
  Country: US (occurrence: US)
  Receive Date: 20171205
  Receipt Date: 20171205
  Transmission Date: 20180321
  Serious: No
  Sender: FDA-Public Use
  Company Number: US-ENDO PHARMACEUTICALS INC-2017-005014

PATIENT
  Sex: Male

DRUGS (2)
  1. ALPRAZOLAM TABLETS [Suspect]
     Active Substance: ALPRAZOLAM
     Indication: INSOMNIA
     Dosage: UNK UNK, UNKNOWN
     Route: 065
  2. ALPRAZOLAM TABLETS [Suspect]
     Active Substance: ALPRAZOLAM
     Indication: ANXIETY

REACTIONS (3)
  - Suspected counterfeit product [Unknown]
  - Product size issue [Unknown]
  - Drug ineffective [Unknown]
